FAERS Safety Report 7387508-4 (Version None)
Quarter: 2011Q1

REPORT INFORMATION
  Report Type: 
  Country: None (occurrence: None)
  Receive Date: 20110331
  Receipt Date: 20110304
  Transmission Date: 20110831
  Serious: No
  Sender: FDA-Public Use
  Company Number: US-B.I. PHARMACEUTICALS,INC./RIDGEFIELD-2011-BP-06842BP

PATIENT
  Age: 86 Year
  Sex: Male

DRUGS (6)
  1. PRADAXA [Suspect]
     Indication: ATRIAL FIBRILLATION
     Dosage: 300 MG
     Route: 048
     Dates: start: 20110303
  2. CARAFATE [Concomitant]
     Indication: ULCER
     Dosage: 4 G
     Route: 048
     Dates: start: 20100101
  3. NORVASC [Concomitant]
     Indication: HYPERTENSION
     Dosage: 10 MG
     Route: 048
  4. PRILOSEC [Concomitant]
     Indication: ULCER
     Dosage: 80 MG
     Route: 048
     Dates: start: 20100101
  5. LOVASTATIN [Concomitant]
     Indication: BLOOD CHOLESTEROL INCREASED
     Route: 048
  6. COREG [Concomitant]
     Indication: HYPERTENSION
     Route: 048

REACTIONS (2)
  - GINGIVAL SWELLING [None]
  - THROAT IRRITATION [None]
